FAERS Safety Report 19040686 (Version 1)
Quarter: 2021Q1

REPORT INFORMATION
  Report Type: Spontaneous
  Country: CA (occurrence: CA)
  Receive Date: 20210322
  Receipt Date: 20210322
  Transmission Date: 20210420
  Serious: Yes (Other)
  Sender: FDA-Public Use
  Company Number: CA-ABBVIE-21K-028-3824197-00

PATIENT
  Age: 59 Year
  Sex: Male

DRUGS (5)
  1. SOTALOL. [Interacting]
     Active Substance: SOTALOL
     Indication: ATRIAL FIBRILLATION
     Route: 065
     Dates: end: 2020
  2. PROPOFOL. [Suspect]
     Active Substance: PROPOFOL
     Indication: SEDATION
     Route: 065
     Dates: end: 2020
  3. LOPINAVIR/RITONAVIR [Interacting]
     Active Substance: LOPINAVIR\RITONAVIR
     Dosage: DAY 4, 160 ML SOLUTION (12800/3200MG) IN SINGLE DOSE DUE TO DOSING ERROR
     Route: 048
     Dates: start: 2020, end: 2020
  4. LOPINAVIR/RITONAVIR [Suspect]
     Active Substance: LOPINAVIR\RITONAVIR
     Indication: COVID-19
     Dosage: 400/100 MG
     Route: 048
     Dates: start: 2020, end: 2020
  5. DEXAMETHASONE. [Interacting]
     Active Substance: DEXAMETHASONE
     Indication: ENZYME INDUCTION
     Route: 065
     Dates: start: 2020

REACTIONS (8)
  - Overdose [Unknown]
  - Drug interaction [Unknown]
  - Drug level increased [Unknown]
  - Cholecystitis [Unknown]
  - Off label use [Unknown]
  - Hypertriglyceridaemia [Unknown]
  - Food interaction [Unknown]
  - Bradycardia [Unknown]

NARRATIVE: CASE EVENT DATE: 2020
